FAERS Safety Report 4452914-4 (Version None)
Quarter: 2004Q3

REPORT INFORMATION
  Report Type: 
  Country: None (occurrence: None)
  Receive Date: 20040916
  Receipt Date: 20040902
  Transmission Date: 20050211
  Serious: Yes (Other)
  Sender: FDA-Public Use
  Company Number: 2004062447

PATIENT
  Sex: Male
  Weight: 93.441 kg

DRUGS (6)
  1. DILANTIN KAPSEAL [Suspect]
     Indication: CONVULSION
     Dosage: 300 MG (1 IN 1 D); ORAL (SEE IMAGE)
     Route: 048
     Dates: start: 20010101
  2. ALL OTHER THERAPEUTIC PRODUCTS (ALL OTHER THERAPEUTIC PRODUCTS) [Suspect]
     Indication: ILL-DEFINED DISORDER
     Route: 065
  3. SIMVASTATIN [Concomitant]
  4. ESCITALOPRAM OXALATE [Concomitant]
  5. ACETYLSALICYLIC ACID [Concomitant]
  6. WARFARIN SODIUM [Concomitant]

REACTIONS (8)
  - CONVULSION [None]
  - DEAFNESS [None]
  - DEMENTIA ALZHEIMER'S TYPE [None]
  - DIFFICULTY IN WALKING [None]
  - DRUG INTERACTION [None]
  - GAIT DISTURBANCE [None]
  - OVERDOSE [None]
  - SPEECH DISORDER [None]
